FAERS Safety Report 25193717 (Version 4)
Quarter: 2025Q2

REPORT INFORMATION
  Report Type: Spontaneous
  Country: ES (occurrence: ES)
  Receive Date: 20250414
  Receipt Date: 20250515
  Transmission Date: 20250716
  Serious: Yes (Death, Congenital Anomaly)
  Sender: ABBVIE
  Company Number: None

PATIENT

DRUGS (2)
  1. MESALAMINE [Suspect]
     Active Substance: MESALAMINE
     Indication: Maternal exposure timing unspecified
     Route: 064
  2. ENTYVIO [Suspect]
     Active Substance: VEDOLIZUMAB
     Indication: Maternal exposure timing unspecified
     Route: 064

REACTIONS (2)
  - Congenital central nervous system anomaly [Fatal]
  - Foetal exposure during pregnancy [Unknown]

NARRATIVE: CASE EVENT DATE: 20250217
